FAERS Safety Report 14047705 (Version 1)
Quarter: 2017Q4

REPORT INFORMATION
  Report Type: Spontaneous
  Country: US (occurrence: US)
  Receive Date: 20171005
  Receipt Date: 20171005
  Transmission Date: 20180321
  Serious: Yes (Hospitalization)
  Sender: FDA-Public Use
  Company Number: US-ACORDA-ACO_140549_2017

PATIENT
  Sex: Male

DRUGS (1)
  1. AMPYRA [Suspect]
     Active Substance: DALFAMPRIDINE
     Indication: PRODUCT USED FOR UNKNOWN INDICATION
     Dosage: 10 MG, UNK
     Route: 048

REACTIONS (9)
  - Dehydration [Recovering/Resolving]
  - Blood pressure fluctuation [Unknown]
  - Product size issue [Unknown]
  - Condition aggravated [Unknown]
  - Therapeutic response unexpected [Unknown]
  - Product preparation error [Unknown]
  - Therapy cessation [Unknown]
  - Multiple sclerosis relapse [Unknown]
  - Dysphagia [Unknown]

NARRATIVE: CASE EVENT DATE: 2013
